FAERS Safety Report 17581610 (Version 2)
Quarter: 2020Q4

REPORT INFORMATION
  Report Type: Spontaneous
  Country: GB (occurrence: GB)
  Receive Date: 20200325
  Receipt Date: 20201006
  Transmission Date: 20210113
  Serious: Yes (Other)
  Sender: FDA-Public Use
  Company Number: GB-MYLANLABS-2020M1030495

PATIENT
  Age: 87 Year
  Sex: Male

DRUGS (2)
  1. TICAGRELOR. [Interacting]
     Active Substance: TICAGRELOR
     Indication: ACUTE CORONARY SYNDROME
     Dosage: 5 DOSAGE FORM
     Dates: start: 20181009
  2. CLARITHROMYCIN. [Suspect]
     Active Substance: CLARITHROMYCIN
     Indication: PNEUMONIA
     Dosage: 5 DOSAGE FORM
     Dates: start: 20181009, end: 20181012

REACTIONS (2)
  - Haematuria [Unknown]
  - Labelled drug-drug interaction medication error [Unknown]
